FAERS Safety Report 7755042-5 (Version None)
Quarter: 2011Q3

REPORT INFORMATION
  Report Type: 
  Country: None (occurrence: None)
  Receive Date: 20110916
  Receipt Date: 20110905
  Transmission Date: 20111222
  Serious: Yes (Hospitalization, Other)
  Sender: FDA-Public Use
  Company Number: MX-ELI_LILLY_AND_COMPANY-MX201109001369

PATIENT
  Age: 85 Year
  Sex: Male
  Weight: 47 kg

DRUGS (3)
  1. FORTEO [Suspect]
     Indication: BONE DECALCIFICATION
     Dosage: 20 UG, QD
     Route: 058
  2. FORTEO [Suspect]
     Dosage: 20 UG, QD
     Route: 058
     Dates: start: 20110113, end: 20110821
  3. ANTIBIOTICS [Concomitant]

REACTIONS (2)
  - OFF LABEL USE [None]
  - VARICOSE ULCERATION [None]
